FAERS Safety Report 7237901-5 (Version None)
Quarter: 2011Q1

REPORT INFORMATION
  Report Type: 
  Country: None (occurrence: None)
  Receive Date: 20110121
  Receipt Date: 20110111
  Transmission Date: 20110831
  Serious: Yes (Hospitalization)
  Sender: FDA-Public Use
  Company Number: BE-PFIZER INC-2010003983

PATIENT
  Age: 58 Year
  Sex: Female
  Weight: 54.1 kg

DRUGS (6)
  1. FELDENE [Suspect]
     Indication: PAIN
     Dosage: 20 MG, 1X/DAY
     Route: 048
     Dates: start: 20091216, end: 20100106
  2. TRANSTEC TTS [Concomitant]
     Indication: PAIN
     Dosage: UNK
     Route: 062
     Dates: start: 20091118
  3. VINORELBINE [Suspect]
     Indication: BREAST CANCER
     Dosage: 25 MG/M2 DAYS 1 AND 8
     Route: 042
     Dates: start: 20091118, end: 20091230
  4. MEDROL [Concomitant]
     Indication: TUMOUR PAIN
     Dosage: 16 MG, 1X/DAY
     Route: 048
     Dates: start: 20091216, end: 20100106
  5. LYRICA [Concomitant]
     Indication: PAIN
     Dosage: 75 MG, 2X/DAY
     Route: 048
     Dates: start: 20091216
  6. NERATINIB [Suspect]
     Indication: BREAST CANCER
     Dosage: 160 MG, 1X/DAY
     Route: 048
     Dates: start: 20081119, end: 20100105

REACTIONS (1)
  - RENAL FAILURE [None]
